FAERS Safety Report 10745752 (Version 1)
Quarter: 2015Q1

REPORT INFORMATION
  Report Type: Spontaneous
  Country: US (occurrence: None)
  Receive Date: 20150127
  Receipt Date: 20150127
  Transmission Date: 20150721
  Serious: Yes (Disabling)
  Sender: FDA-Public Use
  Company Number: None

PATIENT
  Age: 71 Year
  Sex: Male
  Weight: 66.23 kg

DRUGS (1)
  1. TAMSULOSIN 0.4 MG [Suspect]
     Active Substance: TAMSULOSIN
     Indication: DYSURIA
     Dosage: 1 CAP
     Route: 048
     Dates: start: 20141002, end: 20141112

REACTIONS (2)
  - Urinary incontinence [None]
  - Micturition urgency [None]

NARRATIVE: CASE EVENT DATE: 20141129
